FAERS Safety Report 25632288 (Version 1)
Quarter: 2025Q3

REPORT INFORMATION
  Report Type: Spontaneous
  Country: US (occurrence: None)
  Receive Date: 20250731
  Receipt Date: 20250731
  Transmission Date: 20251020
  Serious: Yes (Hospitalization)
  Sender: FDA-CTU
  Company Number: None

PATIENT
  Age: 60 Year
  Sex: Male

DRUGS (5)
  1. LENALIDOMIDE [Suspect]
     Active Substance: LENALIDOMIDE
     Indication: Plasma cell myeloma
     Dosage: 25MG QD ORAL
     Route: 048
     Dates: start: 20250606, end: 20250611
  2. ISATUXIMAB [Suspect]
     Active Substance: ISATUXIMAB
  3. VELCADE [Suspect]
     Active Substance: BORTEZOMIB
  4. DEXAMETHASONE [Suspect]
     Active Substance: DEXAMETHASONE
  5. Isatuximag + Revlimid + Velcade + Dex [Concomitant]

REACTIONS (2)
  - Pancreatitis [None]
  - Renal failure [None]

NARRATIVE: CASE EVENT DATE: 20250611
